FAERS Safety Report 8785601 (Version 1)
Quarter: 2012Q4

REPORT INFORMATION
  Report Type: Spontaneous
  Country: US (occurrence: None)
  Receive Date: 20120904
  Receipt Date: 20120904
  Transmission Date: 20130627
  Serious: Yes (Other)
  Sender: FDA-Public Use
  Company Number: 100414-000242

PATIENT
  Sex: Female

DRUGS (2)
  1. PROACTIV RENEWING CLEANSER [Suspect]
     Indication: ACNE
     Dates: start: 20100305
  2. PROACTIV REPAIRING TREATMENT [Suspect]
     Dates: start: 20100305

REACTIONS (6)
  - Erythema [None]
  - Skin exfoliation [None]
  - Urticaria [None]
  - Convulsion [None]
  - Keratitis [None]
  - Dermatitis [None]
